FAERS Safety Report 8995267 (Version 1)
Quarter: 2012Q4

REPORT INFORMATION
  Report Type: Spontaneous
  Country: US (occurrence: None)
  Receive Date: 20121221
  Receipt Date: 20121221
  Transmission Date: 20130627
  Serious: Yes (Hospitalization, Other)
  Sender: FDA-Public Use
  Company Number: NSR_00752_2012

PATIENT
  Age: 7 Year
  Sex: Male

DRUGS (2)
  1. LAMOTRIGINE [Suspect]
     Indication: EPILEPSY
  2. PREDNISOLONE 1 MG/KG [Suspect]
     Indication: PRODUCT USED FOR UNKNOWN INDICATION
     Dosage: (Intravenous (not otherwise specified)), (Taper Oral)

REACTIONS (2)
  - Epilepsy [None]
  - Dermatitis [None]
